FAERS Safety Report 26129414 (Version 2)
Quarter: 2025Q4

REPORT INFORMATION
  Report Type: Spontaneous
  Country: JP (occurrence: JP)
  Receive Date: 20251208
  Receipt Date: 20251219
  Transmission Date: 20260118
  Serious: Yes (Other)
  Sender: ROCHE
  Company Number: JP-ROCHE-10000452107

PATIENT
  Age: 72 Year
  Sex: Female

DRUGS (3)
  1. FARICIMAB [Suspect]
     Active Substance: FARICIMAB
     Indication: Retinal vein occlusion
  2. FARICIMAB [Suspect]
     Active Substance: FARICIMAB
     Indication: Macular oedema
  3. FARICIMAB [Suspect]
     Active Substance: FARICIMAB
     Indication: Vitreoretinal traction syndrome

REACTIONS (1)
  - Macular hole [Recovered/Resolved]
